FAERS Safety Report 26062193 (Version 1)
Quarter: 2025Q4

REPORT INFORMATION
  Report Type: Report from Study
  Country: IN (occurrence: IN)
  Receive Date: 20251119
  Receipt Date: 20251119
  Transmission Date: 20260118
  Serious: Yes (Other)
  Sender: CIPLA
  Company Number: IN-CIPLA LTD.-2025IN14325

PATIENT

DRUGS (5)
  1. METOPROLOL SUCCINATE [Suspect]
     Active Substance: METOPROLOL SUCCINATE
     Indication: Hypertension
     Dosage: 50 MILLIGRAM (DOSE-1), FREQUENCY 1 (UNITS UNSPECIFIED)
     Route: 048
  2. METOPROLOL SUCCINATE [Suspect]
     Active Substance: METOPROLOL SUCCINATE
     Indication: Chest pain
  3. TIKLEEN [Concomitant]
     Indication: Product used for unknown indication
     Dosage: UNK
     Route: 065
  4. LIPICURE-AS [Concomitant]
     Indication: Product used for unknown indication
     Dosage: UNK
     Route: 065
  5. TOPACE [Concomitant]
     Indication: Product used for unknown indication
     Dosage: UNK
     Route: 065

REACTIONS (3)
  - Cardiovascular disorder [Unknown]
  - Weight decreased [Not Recovered/Not Resolved]
  - Hypotension [Not Recovered/Not Resolved]
